FAERS Safety Report 8274248-2 (Version None)
Quarter: 2012Q2

REPORT INFORMATION
  Report Type: 
  Country: None (occurrence: None)
  Receive Date: 20120411
  Receipt Date: 20120402
  Transmission Date: 20120825
  Serious: Yes (Hospitalization)
  Sender: FDA-Public Use
  Company Number: CA-JNJFOC-20120202745

PATIENT
  Sex: Female
  Weight: 64 kg

DRUGS (5)
  1. CELEXA [Concomitant]
     Indication: ANXIETY
     Route: 048
  2. IMURAN [Concomitant]
     Indication: CROHN'S DISEASE
     Dosage: 2.5 TABLETS
     Route: 048
  3. REMICADE [Suspect]
     Indication: CROHN'S DISEASE
     Dosage: 6TH INFUSION
     Route: 042
     Dates: start: 20111213
  4. REMICADE [Suspect]
     Route: 042
     Dates: start: 20110519
  5. SYNTHROID [Concomitant]
     Indication: HYPOTHYROIDISM
     Dosage: 1 TABLET
     Route: 048

REACTIONS (1)
  - NEPHROLITHIASIS [None]
